FAERS Safety Report 13822163 (Version 1)
Quarter: 2017Q3

REPORT INFORMATION
  Report Type: Spontaneous
  Country: US (occurrence: US)
  Receive Date: 20170801
  Receipt Date: 20170801
  Transmission Date: 20171127
  Serious: Yes (Life-Threatening, Disabling, Other)
  Sender: FDA-Public Use
  Company Number: None

PATIENT
  Age: 54 Year
  Sex: Male
  Weight: 92.99 kg

DRUGS (11)
  1. LISINOPRIL. [Suspect]
     Active Substance: LISINOPRIL
     Indication: ANTICOAGULANT THERAPY
     Dosage: ALL THIS INFO ON RECORD WITH RX WALMART 544 WARRIOR WAY GRAND JUNCTION CO 81501
     Dates: start: 20170622, end: 20170705
  2. LOSARTAN. [Concomitant]
     Active Substance: LOSARTAN
  3. SIMVASTATIN. [Concomitant]
     Active Substance: SIMVASTATIN
  4. EPITOL [Concomitant]
     Active Substance: CARBAMAZEPINE
  5. CHLOROTABS/ANTIHISTAMINES [Concomitant]
  6. KLONOPIN [Concomitant]
     Active Substance: CLONAZEPAM
  7. PLAVIX [Concomitant]
     Active Substance: CLOPIDOGREL BISULFATE
  8. METOPROLOL TARTRATE. [Concomitant]
     Active Substance: METOPROLOL TARTRATE
  9. LISINOPRIL. [Suspect]
     Active Substance: LISINOPRIL
     Indication: BLOOD PRESSURE INCREASED
     Dosage: ALL THIS INFO ON RECORD WITH RX WALMART 544 WARRIOR WAY GRAND JUNCTION CO 81501
     Dates: start: 20170622, end: 20170705
  10. ZANEXTRA [Concomitant]
     Active Substance: ENALAPRIL MALEATE\LERCANIDIPINE HYDROCHLORIDE
  11. ASPIRIN. [Concomitant]
     Active Substance: ASPIRIN

REACTIONS (3)
  - Cough [None]
  - Adverse drug reaction [None]
  - Dyspnoea [None]

NARRATIVE: CASE EVENT DATE: 20170622
